FAERS Safety Report 4846137-4 (Version None)
Quarter: 2005Q4

REPORT INFORMATION
  Report Type: 
  Country: None (occurrence: None)
  Receive Date: 20051201
  Receipt Date: 20051118
  Transmission Date: 20060501
  Serious: Yes (Hospitalization, Disabling)
  Sender: FDA-Public Use
  Company Number: 2005153738

PATIENT
  Sex: Male
  Weight: 2.93 kg

DRUGS (1)
  1. CYTOTEC [Suspect]
     Indication: INDUCED LABOUR
     Dosage: 100 MG, PLACENTAL
     Dates: start: 20031122

REACTIONS (20)
  - ALANINE AMINOTRANSFERASE INCREASED [None]
  - ASPARTATE AMINOTRANSFERASE INCREASED [None]
  - BLOOD CREATINE PHOSPHOKINASE INCREASED [None]
  - BLOOD LACTATE DEHYDROGENASE INCREASED [None]
  - BLOOD PRESSURE SYSTOLIC DECREASED [None]
  - DRUG EXPOSURE DURING PREGNANCY [None]
  - DRUG INEFFECTIVE [None]
  - ENCEPHALOPATHY NEONATAL [None]
  - FEEDING DISORDER NEONATAL [None]
  - HAEMATOCRIT DECREASED [None]
  - HAEMOGLOBIN DECREASED [None]
  - HYPOXIC ENCEPHALOPATHY [None]
  - LATE METABOLIC ACIDOSIS OF NEWBORN [None]
  - NEONATAL ASPHYXIA [None]
  - NEONATAL ASPIRATION [None]
  - NEONATAL DISORDER [None]
  - NEONATAL RESPIRATORY DISTRESS SYNDROME [None]
  - PERSISTENT FOETAL CIRCULATION [None]
  - PULMONARY HAEMORRHAGE [None]
  - PULMONARY HYPERTENSION [None]
